FAERS Safety Report 4640331-3 (Version None)
Quarter: 2005Q2

REPORT INFORMATION
  Report Type: 
  Country: None (occurrence: None)
  Receive Date: 20050419
  Receipt Date: 20050408
  Transmission Date: 20051028
  Serious: Yes (Other)
  Sender: FDA-Public Use
  Company Number: 2005UW05487

PATIENT
  Age: 50 Year
  Sex: Male
  Weight: 65.77 kg

DRUGS (6)
  1. SEROQUEL [Suspect]
     Indication: SCHIZOAFFECTIVE DISORDER
     Dosage: 500 MG DAILY PO
     Route: 048
     Dates: start: 20021101
  2. INTERFERON [Concomitant]
  3. WELLBUTRIN [Concomitant]
  4. BUSPAR [Concomitant]
  5. COGENTIN [Concomitant]
  6. PROTONIX [Concomitant]

REACTIONS (4)
  - HAEMATOCRIT DECREASED [None]
  - HAEMOGLOBIN DECREASED [None]
  - RED BLOOD CELL COUNT DECREASED [None]
  - WHITE BLOOD CELL COUNT DECREASED [None]
